FAERS Safety Report 8957687 (Version 2)
Quarter: 2012Q4

REPORT INFORMATION
  Report Type: 
  Country: US (occurrence: US)
  Receive Date: 20121210
  Receipt Date: 20121226
  Transmission Date: 20130627
  Serious: No
  Sender: FDA-Public Use
  Company Number: US-PFIZER INC-2012310046

PATIENT
  Age: 61 Year
  Sex: Female
  Weight: 77.1 kg

DRUGS (2)
  1. LYRICA [Suspect]
     Indication: SPINAL PAIN
     Dosage: 75 mg, 3x/day
  2. LYRICA [Suspect]
     Indication: BACK PAIN

REACTIONS (5)
  - Drug ineffective [Unknown]
  - Depression [Not Recovered/Not Resolved]
  - Somnolence [Not Recovered/Not Resolved]
  - Confusional state [Not Recovered/Not Resolved]
  - Burning sensation [Unknown]
